FAERS Safety Report 5448046-9 (Version None)
Quarter: 2007Q3

REPORT INFORMATION
  Report Type: 
  Country: None (occurrence: None)
  Receive Date: 20070910
  Receipt Date: 20070906
  Transmission Date: 20080115
  Serious: Yes (Death, Hospitalization)
  Sender: FDA-Public Use
  Company Number: US-MERCK-0709USA00775

PATIENT
  Age: 84 Year
  Sex: Male

DRUGS (4)
  1. ZOLINZA [Suspect]
     Indication: LYMPHOMA
     Route: 048
     Dates: start: 20070101, end: 20070727
  2. ALBUTEROL [Concomitant]
     Route: 065
  3. SPIRIVA [Concomitant]
     Route: 065
  4. NIACIN [Concomitant]
     Route: 065

REACTIONS (5)
  - DRY MOUTH [None]
  - EATING DISORDER [None]
  - PYREXIA [None]
  - SUDDEN DEATH [None]
  - WEIGHT DECREASED [None]
